FAERS Safety Report 13991528 (Version 2)
Quarter: 2017Q3

REPORT INFORMATION
  Report Type: Spontaneous
  Country: DE (occurrence: DE)
  Receive Date: 20170920
  Receipt Date: 20170928
  Transmission Date: 20171128
  Serious: Yes (Hospitalization)
  Sender: FDA-Public Use
  Company Number: DE-TORRENT-00007092

PATIENT
  Age: 76 Year
  Sex: Female

DRUGS (4)
  1. TAVOR (LORAZEPAM) [Concomitant]
     Active Substance: LORAZEPAM
  2. TRAZODON NEURAXPHARM [Concomitant]
     Active Substance: TRAZODONE HYDROCHLORIDE
  3. VENLAFAXINE [Interacting]
     Active Substance: VENLAFAXINE HYDROCHLORIDE
  4. RISPERIDONE. [Suspect]
     Active Substance: RISPERIDONE

REACTIONS (2)
  - Drug interaction [Recovered/Resolved]
  - Pleurothotonus [Recovered/Resolved]

NARRATIVE: CASE EVENT DATE: 20140811
